FAERS Safety Report 19227903 (Version 9)
Quarter: 2024Q3

REPORT INFORMATION
  Report Type: Report from Study
  Country: CO (occurrence: CO)
  Receive Date: 20210506
  Receipt Date: 20240717
  Transmission Date: 20241016
  Serious: Yes (Other)
  Sender: ROCHE
  Company Number: CO-002147023-PHHY2016CO041333

PATIENT
  Age: 45 Year
  Sex: Female
  Weight: 60.0 kg

DRUGS (14)
  1. XOLAIR [Suspect]
     Active Substance: OMALIZUMAB
     Indication: Idiopathic urticaria
     Route: 058
  2. XOLAIR [Suspect]
     Active Substance: OMALIZUMAB
     Indication: Chronic spontaneous urticaria
     Route: 058
     Dates: start: 20160328
  3. XOLAIR [Suspect]
     Active Substance: OMALIZUMAB
     Indication: Urticaria
     Route: 058
     Dates: start: 20170801
  4. XOLAIR [Suspect]
     Active Substance: OMALIZUMAB
     Route: 058
     Dates: start: 20191001
  5. XOLAIR [Suspect]
     Active Substance: OMALIZUMAB
     Dosage: 300 MG, QMO (STARTED 3 YEARS AGO)
     Route: 058
  6. XOLAIR [Suspect]
     Active Substance: OMALIZUMAB
     Route: 058
     Dates: start: 20201020
  7. XOLAIR [Suspect]
     Active Substance: OMALIZUMAB
     Route: 058
  8. XOLAIR [Suspect]
     Active Substance: OMALIZUMAB
     Route: 058
     Dates: start: 20190823
  9. XOLAIR [Suspect]
     Active Substance: OMALIZUMAB
     Route: 065
  10. XOLAIR [Suspect]
     Active Substance: OMALIZUMAB
     Route: 065
     Dates: start: 20240703
  11. INSULIN NOS [Concomitant]
     Active Substance: INSULIN NOS
  12. SITAGLIPTIN [Concomitant]
     Active Substance: SITAGLIPTIN
     Indication: Diabetes mellitus
     Dosage: 20 MG, Q12H (STARTED 1 YEAR AGO)
     Route: 048
  13. INSULIN LISPRO [Concomitant]
     Active Substance: INSULIN LISPRO
  14. BILASTINE [Concomitant]
     Active Substance: BILASTINE
     Route: 065

REACTIONS (18)
  - Asthmatic crisis [Unknown]
  - Urticaria [Not Recovered/Not Resolved]
  - Illness [Recovered/Resolved]
  - Pruritus [Recovered/Resolved]
  - Rash macular [Recovered/Resolved]
  - Rash [Unknown]
  - Dyspnoea [Unknown]
  - Movement disorder [Unknown]
  - Blood glucose increased [Unknown]
  - Inflammation [Unknown]
  - Swelling [Unknown]
  - Scratch [Unknown]
  - Choking sensation [Unknown]
  - Urticaria [Recovered/Resolved]
  - Dermatitis allergic [Unknown]
  - Product use issue [Unknown]
  - Paraesthesia [Unknown]
  - Pruritus [Unknown]

NARRATIVE: CASE EVENT DATE: 20201010
